FAERS Safety Report 5781696-9 (Version None)
Quarter: 2008Q2

REPORT INFORMATION
  Report Type: 
  Country: None (occurrence: None)
  Receive Date: 20080623
  Receipt Date: 20070712
  Transmission Date: 20081010
  Serious: No
  Sender: FDA-Public Use
  Company Number: US-ASTRAZENECA-2007UW16349

PATIENT
  Age: 66 Year
  Sex: Male
  Weight: 90.7 kg

DRUGS (3)
  1. RHINOCORT [Suspect]
     Indication: SINUS DISORDER
     Dosage: 1 SPRAY EACH NOSTRIL DAILY
     Route: 045
     Dates: start: 20070501
  2. BLOOD PRESSURE MEDICATIONS [Concomitant]
  3. ZYRTEC [Concomitant]
     Dosage: 1 TAB HS

REACTIONS (2)
  - ARTHRALGIA [None]
  - MALAISE [None]
